FAERS Safety Report 12050786 (Version 1)
Quarter: 2016Q1

REPORT INFORMATION
  Report Type: Report from Study
  Country: US (occurrence: US)
  Receive Date: 20160208
  Receipt Date: 20160208
  Transmission Date: 20160526
  Serious: No
  Sender: FDA-Public Use
  Company Number: US-ABBVIE-15P-163-1394521-00

PATIENT
  Age: 22 Year
  Sex: Female

DRUGS (2)
  1. HUMIRA [Suspect]
     Active Substance: ADALIMUMAB
     Indication: COLITIS ULCERATIVE
     Dosage: INITIAL LOADING DOSES
     Route: 058
     Dates: start: 20150312, end: 20150312
  2. HUMIRA [Suspect]
     Active Substance: ADALIMUMAB
     Indication: CROHN^S DISEASE
     Route: 058
     Dates: start: 2015

REACTIONS (7)
  - Visual impairment [Unknown]
  - Arthralgia [Unknown]
  - Dyspnoea [Unknown]
  - Uterine spasm [Unknown]
  - Ovarian cyst [Unknown]
  - Fibromyalgia [Unknown]
  - Lung infiltration [Unknown]

NARRATIVE: CASE EVENT DATE: 20150312
